APPROVED DRUG PRODUCT: DIPROLENE AF
Active Ingredient: BETAMETHASONE DIPROPIONATE
Strength: EQ 0.05% BASE **Federal Register determination that product was not discontinued or withdrawn for safety or effectiveness reasons**
Dosage Form/Route: CREAM, AUGMENTED;TOPICAL
Application: N019555 | Product #001
Applicant: ORGANON LLC A SUB OF ORGANON AND CO
Approved: Apr 27, 1987 | RLD: Yes | RS: No | Type: DISCN